FAERS Safety Report 11221916 (Version 4)
Quarter: 2016Q1

REPORT INFORMATION
  Report Type: Spontaneous
  Country: US (occurrence: US)
  Receive Date: 20150626
  Receipt Date: 20160203
  Transmission Date: 20160525
  Serious: Yes (Hospitalization)
  Sender: FDA-Public Use
  Company Number: US-GLAXOSMITHKLINE-US2015GSK091174

PATIENT
  Sex: Male
  Weight: 121 kg

DRUGS (1)
  1. VOTRIENT [Suspect]
     Active Substance: PAZOPANIB HYDROCHLORIDE
     Indication: RENAL CELL CARCINOMA
     Dosage: 200 MG, U
     Route: 065
     Dates: start: 20150317, end: 20150424

REACTIONS (6)
  - Nausea [Unknown]
  - Dehydration [Unknown]
  - Rash generalised [Unknown]
  - Adverse event [Unknown]
  - Pyrexia [Unknown]
  - Vomiting [Unknown]
